FAERS Safety Report 23430005 (Version 1)
Quarter: 2024Q1

REPORT INFORMATION
  Report Type: Spontaneous
  Country: US (occurrence: US)
  Receive Date: 20240122
  Receipt Date: 20240122
  Transmission Date: 20240410
  Serious: No
  Sender: FDA-Public Use
  Company Number: US-MMM-K680Z9QL

PATIENT
  Sex: Female

DRUGS (1)
  1. STEGLATRO [Suspect]
     Active Substance: ERTUGLIFLOZIN PIDOLATE
     Indication: Blood glucose abnormal
     Dosage: 15 MILLIGRAM, ONCE PER DAY (QD)
     Route: 048
     Dates: end: 202401

REACTIONS (3)
  - Renal disorder [Unknown]
  - Pollakiuria [Unknown]
  - Micturition urgency [Unknown]
